FAERS Safety Report 13094533 (Version 1)
Quarter: 2017Q1

REPORT INFORMATION
  Report Type: Report from Study
  Country: US (occurrence: US)
  Receive Date: 20170106
  Receipt Date: 20170106
  Transmission Date: 20170428
  Serious: No
  Sender: FDA-Public Use
  Company Number: GXBR2016US003130

PATIENT
  Age: 46 Year
  Sex: Male

DRUGS (1)
  1. GLATOPA [Suspect]
     Active Substance: GLATIRAMER ACETATE
     Indication: MULTIPLE SCLEROSIS
     Dosage: 20 MG, QD
     Route: 065
     Dates: start: 2015

REACTIONS (3)
  - Injection site discomfort [Recovering/Resolving]
  - Injection site haemorrhage [Recovering/Resolving]
  - Injection site rash [Recovering/Resolving]

NARRATIVE: CASE EVENT DATE: 20161007
